FAERS Safety Report 8399342-7 (Version None)
Quarter: 2012Q1

REPORT INFORMATION
  Report Type: 
  Country: None (occurrence: None)
  Receive Date: 20120323
  Receipt Date: 20110303
  Transmission Date: 20120608
  Serious: Yes (Hospitalization)
  Sender: FDA-Public Use
  Company Number: 163-21880-11020821

PATIENT
  Age: 70 Year
  Sex: Male

DRUGS (9)
  1. CALCIUM PLUS VITAMIN D (OS-CAL) (UNKNOWN) [Concomitant]
  2. OXYCODONE HCL (OXYCODONE HYDROCHLORIDE) (UNKNOWN) [Concomitant]
  3. FRAGMIN (HEPARIN-FRACTION, SODIUM SALT) (UNKNOWN) [Concomitant]
  4. DECADRON [Concomitant]
  5. DOXEPIN HCL [Concomitant]
  6. DIAZEPAM [Concomitant]
  7. ALLOPURINOL [Concomitant]
  8. REVLIMID [Suspect]
     Indication: MULTIPLE MYELOMA
     Dosage: 25 MG, 21 OF 28 DAYS, PO
     Route: 048
     Dates: start: 20081101, end: 20110101
  9. NEURONTIN [Concomitant]

REACTIONS (1)
  - PNEUMONIA [None]
